FAERS Safety Report 9511288 (Version 1)
Quarter: 2013Q1

REPORT INFORMATION
  Report Type: Spontaneous
  Country: US (occurrence: None)
  Receive Date: 20130305
  Receipt Date: 20130305
  Transmission Date: 20140127
  Serious: Yes (Hospitalization, Other)
  Sender: FDA-Public Use
  Company Number: 163-21880-12022684

PATIENT
  Age: 72 Year
  Sex: Female
  Weight: 61.24 kg

DRUGS (6)
  1. REVLIMID (LENALIDOMIDE) (CAPSULES) [Suspect]
     Indication: PLASMA CELL MYELOMA
     Dosage: 25 MG, 3 WEEKS OUT OF 4 WEEKS, PO
     Route: 048
     Dates: start: 20120123, end: 20120212
  2. DEXAMETHASONE (DEXAMETHASONE) (4 MILLIGRAM, TABLETS)? [Concomitant]
  3. LASIX (FUROSEMIDE) (UNKNOWN) [Concomitant]
  4. METOPROLOL (METOPROLOL) (UNKNOWN) [Concomitant]
  5. KLOR-CON (POTASSIUM CHLORIDE) (UNKNOWN) [Concomitant]
  6. BACTRIM (BACTRIM) [Concomitant]

REACTIONS (3)
  - Pneumonia [None]
  - Cough [None]
  - Cardiac failure [None]
